FAERS Safety Report 19067444 (Version 1)
Quarter: 2021Q1

REPORT INFORMATION
  Report Type: Other
  Country: IT (occurrence: IT)
  Receive Date: 20210329
  Receipt Date: 20210329
  Transmission Date: 20210420
  Serious: Yes (Death)
  Sender: FDA-Public Use
  Company Number: IT-ROCHE-2796965

PATIENT
  Age: 80 Year
  Sex: Female

DRUGS (1)
  1. RITUXIMAB. [Suspect]
     Active Substance: RITUXIMAB
     Indication: LYMPHOMA
     Route: 041

REACTIONS (3)
  - Cytomegalovirus test [Unknown]
  - Infection [Fatal]
  - Multiple organ dysfunction syndrome [Fatal]
